FAERS Safety Report 10289657 (Version 1)
Quarter: 2014Q3

REPORT INFORMATION
  Report Type: Spontaneous
  Country: US (occurrence: US)
  Receive Date: 20140710
  Receipt Date: 20140710
  Transmission Date: 20150326
  Serious: No
  Sender: FDA-Public Use
  Company Number: US-009507513-1406USA003100

PATIENT
  Sex: Male

DRUGS (4)
  1. MIRALAX [Suspect]
     Active Substance: POLYETHYLENE GLYCOL 3350
     Indication: CONSTIPATION
     Dosage: UNK, UNKNOWN
     Route: 048
  2. PHILLIPS STOOL SOFTENER [Concomitant]
     Indication: CONSTIPATION
     Dosage: UNK, UNKNOWN
  3. PHILLIPS STOOL SOFTENER [Concomitant]
     Indication: FAECES HARD
  4. MIRALAX [Suspect]
     Active Substance: POLYETHYLENE GLYCOL 3350
     Indication: FAECES HARD

REACTIONS (1)
  - Drug ineffective [Unknown]
